FAERS Safety Report 9180031 (Version 2)
Quarter: 2013Q2

REPORT INFORMATION
  Report Type: Spontaneous
  Country: US (occurrence: US)
  Receive Date: 20130321
  Receipt Date: 20130502
  Transmission Date: 20140414
  Serious: No
  Sender: FDA-Public Use
  Company Number: US-PFIZER INC-2013088995

PATIENT
  Age: 8 Year
  Sex: Female
  Weight: 22.22 kg

DRUGS (1)
  1. GENOTROPIN [Suspect]
     Indication: BLOOD GROWTH HORMONE ABNORMAL
     Dosage: 0.9 MG, 1X/DAY
     Route: 058
     Dates: start: 201212

REACTIONS (1)
  - Pain in extremity [Not Recovered/Not Resolved]
